FAERS Safety Report 9788621 (Version 1)
Quarter: 2013Q4

REPORT INFORMATION
  Report Type: Report from Study
  Country: AR (occurrence: AR)
  Receive Date: 20131230
  Receipt Date: 20131230
  Transmission Date: 20140711
  Serious: Yes (Death, Hospitalization)
  Sender: FDA-Public Use
  Company Number: PHHY2013AR153036

PATIENT
  Sex: Male

DRUGS (1)
  1. EXFORGE D [Suspect]
     Indication: HYPERTENSION
     Dosage: 1 DF, DAILY (160MG VALS, 5MG AMLO AND 12.5MG HCTZ)
     Route: 048

REACTIONS (4)
  - Lung neoplasm malignant [Fatal]
  - Eating disorder [Unknown]
  - Hypotension [Unknown]
  - Pain [Unknown]
